FAERS Safety Report 19027552 (Version 1)
Quarter: 2021Q1

REPORT INFORMATION
  Report Type: Report from Study
  Country: GB (occurrence: GB)
  Receive Date: 20210319
  Receipt Date: 20210319
  Transmission Date: 20210420
  Serious: Yes (Hospitalization)
  Sender: FDA-Public Use
  Company Number: GB-ASTRAZENECA-2021A138280

PATIENT
  Age: 28248 Day
  Sex: Male

DRUGS (2)
  1. DUAKLIR [Suspect]
     Active Substance: ACLIDINIUM BROMIDE\FORMOTEROL FUMARATE
     Indication: CHRONIC OBSTRUCTIVE PULMONARY DISEASE
     Dosage: PUFFS, TWO TIMES A DAY
     Route: 055
     Dates: start: 20210204, end: 20210224
  2. STUDY PROCEDURE [Suspect]
     Active Substance: INVESTIGATIONAL PRODUCT
     Indication: CHRONIC OBSTRUCTIVE PULMONARY DISEASE
     Route: 065

REACTIONS (2)
  - Dyspnoea [Recovered/Resolved]
  - Forced expiratory volume abnormal [Recovered/Resolved]

NARRATIVE: CASE EVENT DATE: 20210224
